FAERS Safety Report 4319815-3 (Version None)
Quarter: 2004Q1

REPORT INFORMATION
  Report Type: 
  Country: None (occurrence: None)
  Receive Date: 20040316
  Receipt Date: 20040302
  Transmission Date: 20041129
  Serious: Yes (Hospitalization)
  Sender: FDA-Public Use
  Company Number: 03P-251-0242063-00

PATIENT
  Age: 14 Year
  Sex: Male

DRUGS (3)
  1. DEPAKENE [Suspect]
     Indication: PARTIAL SEIZURES
     Dosage: SEE IMAGE
     Route: 048
     Dates: start: 20030801, end: 20030101
  2. DEPAKENE [Suspect]
     Indication: PARTIAL SEIZURES
     Dosage: SEE IMAGE
     Route: 048
     Dates: start: 20030601, end: 20030801
  3. VALPROATE SODIUM [Suspect]
     Indication: PARTIAL SEIZURES
     Dosage: 60 MG/KG, 1 IN 1 D

REACTIONS (2)
  - DRUG INEFFECTIVE [None]
  - EPILEPSY [None]
